FAERS Safety Report 13712877 (Version 2)
Quarter: 2017Q4

REPORT INFORMATION
  Report Type: Report from Study
  Country: None (occurrence: CH)
  Receive Date: 20170703
  Receipt Date: 20171208
  Transmission Date: 20180320
  Serious: Yes (Hospitalization)
  Sender: FDA-Public Use
  Company Number: CH-ABBVIE-17K-151-2027675-00

PATIENT
  Sex: Male

DRUGS (2)
  1. DUODOPA [Suspect]
     Active Substance: CARBIDOPA\LEVODOPA
     Indication: PARKINSON^S DISEASE
     Dosage: MORNING DOSE 8.0ML, CONTINUOUS RATE DAY 3.2ML/H, EXTRA DOSE 2.0ML?16H THERAPY
     Route: 050
     Dates: start: 20150609
  2. DUODOPA [Suspect]
     Active Substance: CARBIDOPA\LEVODOPA
     Dosage: MORNING DOSE: 8ML?CONTINUOUS DOSE:: 2.8ML/H?EXTRA DOSE: 2ML
     Route: 050

REACTIONS (4)
  - Fall [Unknown]
  - Femoral neck fracture [Unknown]
  - Dyskinesia [Unknown]
  - Drug dose omission [Unknown]
